APPROVED DRUG PRODUCT: AMLODIPINE BESYLATE AND BENAZEPRIL HYDROCHLORIDE
Active Ingredient: AMLODIPINE BESYLATE; BENAZEPRIL HYDROCHLORIDE
Strength: EQ 2.5MG BASE;10MG
Dosage Form/Route: CAPSULE;ORAL
Application: A077183 | Product #001 | TE Code: AB
Applicant: DR REDDYS LABORATORIES INC
Approved: Apr 15, 2010 | RLD: No | RS: No | Type: RX